FAERS Safety Report 7155858-2 (Version None)
Quarter: 2010Q4

REPORT INFORMATION
  Report Type: 
  Country: None (occurrence: None)
  Receive Date: 20101214
  Receipt Date: 20101202
  Transmission Date: 20110411
  Serious: Yes (Life-Threatening, Hospitalization, Congenital Anomaly, Other)
  Sender: FDA-Public Use
  Company Number: US-KINGPHARMUSA00001-K200900027

PATIENT
  Age: 57 Year
  Sex: Female

DRUGS (11)
  1. ALTACE [Suspect]
     Indication: HYPERTENSION
     Dosage: 5 MG, BID
     Route: 048
     Dates: end: 20080229
  2. SPIRONOLACTONE [Suspect]
     Indication: HYPERTENSION
     Dosage: 25 MG, QD
     Route: 048
     Dates: start: 20080219, end: 20080229
  3. DIOVANE [Suspect]
     Indication: HYPERTENSION
     Dosage: 80 MG, BID
     Route: 048
  4. METOPROLOL SUCCINATE [Concomitant]
     Indication: HYPERTENSION
     Route: 048
  5. EBRANTIL                           /00631801/ [Concomitant]
     Indication: HYPERTENSION
     Route: 048
  6. FUROSEMIDE [Concomitant]
     Indication: HYPERTENSION
     Dosage: UNK
     Route: 048
     Dates: end: 20080229
  7. HCT-GAMMA [Concomitant]
     Indication: CARDIAC FAILURE
     Dosage: UNK
     Route: 048
     Dates: end: 20080229
  8. INSUMAN INFUSAT [Concomitant]
     Indication: TYPE 1 DIABETES MELLITUS
     Dosage: UNK
     Dates: start: 19810101
  9. LEVOTHYROXINE SODIUM [Concomitant]
     Indication: HYPOTHYROIDISM
     Route: 048
  10. MOXONIDINE [Concomitant]
     Indication: HYPERTENSION
     Route: 048
  11. SIMVASTATIN [Concomitant]
     Indication: HYPERCHOLESTEROLAEMIA
     Route: 048

REACTIONS (10)
  - BLOOD CREATININE INCREASED [None]
  - BLOOD FIBRINOGEN INCREASED [None]
  - BLOOD PARATHYROID HORMONE INCREASED [None]
  - BLOOD UREA INCREASED [None]
  - CHEST DISCOMFORT [None]
  - HAEMODIALYSIS [None]
  - HYPERKALAEMIA [None]
  - HYPERTENSION [None]
  - MALAISE [None]
  - RETCHING [None]
